FAERS Safety Report 4887893-9 (Version None)
Quarter: 2006Q1

REPORT INFORMATION
  Report Type: 
  Country: None (occurrence: None)
  Receive Date: 20060123
  Receipt Date: 20050218
  Transmission Date: 20060701
  Serious: Yes (Hospitalization)
  Sender: FDA-Public Use
  Company Number: US-MERCK-0502USA02850

PATIENT
  Age: 71 Year
  Sex: Male
  Weight: 84 kg

DRUGS (6)
  1. VIOXX [Suspect]
     Indication: ARTHRITIS
     Route: 048
     Dates: start: 19991210, end: 20040606
  2. COUMADIN [Concomitant]
     Route: 065
  3. OXYCONTIN [Concomitant]
     Route: 065
  4. DIFLUCAN [Concomitant]
     Route: 065
  5. VITAMINS (UNSPECIFIED) [Concomitant]
     Route: 065
  6. VANCOMYCIN [Concomitant]
     Route: 065

REACTIONS (4)
  - JOINT INJURY [None]
  - MYOCARDIAL INFARCTION [None]
  - SINUS BRADYCARDIA [None]
  - TOOTH DISCOLOURATION [None]
